FAERS Safety Report 16416738 (Version 19)
Quarter: 2025Q1

REPORT INFORMATION
  Report Type: Report from Study
  Country: BR (occurrence: BR)
  Receive Date: 20190611
  Receipt Date: 20250124
  Transmission Date: 20250409
  Serious: Yes (Hospitalization, Other)
  Sender: GLAXOSMITHKLINE
  Company Number: BR-GLAXOSMITHKLINE-BR2019GSK102514

PATIENT

DRUGS (5)
  1. BELIMUMAB [Suspect]
     Active Substance: BELIMUMAB
     Indication: Systemic lupus erythematosus
     Route: 042
     Dates: start: 20190405
  2. BELIMUMAB [Suspect]
     Active Substance: BELIMUMAB
     Dosage: 120 MG, Q4W
     Route: 042
  3. BELIMUMAB [Suspect]
     Active Substance: BELIMUMAB
     Route: 042
  4. BELIMUMAB [Suspect]
     Active Substance: BELIMUMAB
     Route: 042
  5. PNEUMOCOCCAL VACCINE, POLYVALENT 23 [Concomitant]
     Active Substance: PNEUMOCOCCAL VACCINE, POLYVALENT 23
     Indication: Prophylaxis

REACTIONS (7)
  - Systemic lupus erythematosus [Unknown]
  - Illness [Unknown]
  - Weight decreased [Unknown]
  - Influenza [Recovered/Resolved]
  - COVID-19 [Recovered/Resolved]
  - Inappropriate schedule of product administration [Unknown]
  - Product dose omission issue [Unknown]
